FAERS Safety Report 18528207 (Version 4)
Quarter: 2021Q3

REPORT INFORMATION
  Report Type: Report from Study
  Country: US (occurrence: US)
  Receive Date: 20201120
  Receipt Date: 20210812
  Transmission Date: 20211014
  Serious: Yes (Other)
  Sender: FDA-Public Use
  Company Number: NVSC2020US303804

PATIENT
  Age: 17 Year
  Sex: Male
  Weight: 104 kg

DRUGS (4)
  1. MTX [Concomitant]
     Active Substance: METHOTREXATE SODIUM
     Indication: CENTRAL NERVOUS SYSTEM LEUKAEMIA
     Dosage: UNK
     Route: 065
     Dates: start: 20201110, end: 20201222
  2. BLINATUMOMAB [Concomitant]
     Active Substance: BLINATUMOMAB
     Indication: CENTRAL NERVOUS SYSTEM LEUKAEMIA
     Dosage: UNK
     Route: 042
     Dates: start: 20201113
  3. KYMRIAH [Suspect]
     Active Substance: TISAGENLECLEUCEL
     Indication: ACUTE LYMPHOCYTIC LEUKAEMIA
     Dosage: 16 ML, ONCE/SINGLE (1.7X10E8 CELLS)
     Route: 042
     Dates: start: 20201005, end: 20201005
  4. BLINATUMOMAB [Concomitant]
     Active Substance: BLINATUMOMAB
     Dosage: UNK
     Route: 065
     Dates: start: 20201118, end: 20201210

REACTIONS (6)
  - Central nervous system leukaemia [Unknown]
  - Acute lymphocytic leukaemia recurrent [Unknown]
  - Cytokine release syndrome [Unknown]
  - CSF white blood cell count increased [Unknown]
  - Drug ineffective [Recovering/Resolving]
  - Blast cells present [Unknown]

NARRATIVE: CASE EVENT DATE: 20201102
